FAERS Safety Report 12501276 (Version 2)
Quarter: 2016Q4

REPORT INFORMATION
  Report Type: Spontaneous
  Country: JP (occurrence: JP)
  Receive Date: 20160627
  Receipt Date: 20161003
  Transmission Date: 20170207
  Serious: Yes (Hospitalization, Other)
  Sender: FDA-Public Use
  Company Number: JP-PFIZER INC-2016310139

PATIENT
  Age: 56 Year
  Sex: Female
  Weight: 47.8 kg

DRUGS (5)
  1. CARBOPLATIN. [Suspect]
     Active Substance: CARBOPLATIN
     Indication: OVARIAN CANCER
     Dosage: 224 MG, EVERY 3 WEEKS
     Route: 041
     Dates: start: 20160518
  2. DECADRON [Suspect]
     Active Substance: DEXAMETHASONE
     Indication: OVARIAN CANCER
     Dosage: 19.8 MG, EVERY 3 WEEKS
     Route: 041
     Dates: start: 20160518
  3. FOLIC ACID. [Concomitant]
     Active Substance: FOLIC ACID
     Indication: RHEUMATOID ARTHRITIS
     Dosage: 5 MG, WEEKLY
     Route: 048
  4. RHEUMATREX [Suspect]
     Active Substance: METHOTREXATE SODIUM
     Indication: RHEUMATOID ARTHRITIS
     Dosage: 8 MG WEEKLY (IN THE MORNING AND IN THE EVENING OF EVERY TUESDAY)
     Route: 048
     Dates: end: 20160620
  5. PACLITAXEL. [Suspect]
     Active Substance: PACLITAXEL
     Indication: OVARIAN CANCER
     Dosage: 405 MG, EVERY 3 WEEKS
     Dates: start: 20160518

REACTIONS (2)
  - Ovarian cancer [Unknown]
  - Bone marrow failure [Recovered/Resolved]

NARRATIVE: CASE EVENT DATE: 20160506
